FAERS Safety Report 24387336 (Version 2)
Quarter: 2024Q4

REPORT INFORMATION
  Report Type: Spontaneous
  Country: FR (occurrence: FR)
  Receive Date: 20241002
  Receipt Date: 20241019
  Transmission Date: 20250114
  Serious: Yes (Life-Threatening, Hospitalization)
  Sender: TEVA
  Company Number: FR-TEVA-VS-3248298

PATIENT
  Sex: Male

DRUGS (3)
  1. OCTREOTIDE [Suspect]
     Active Substance: OCTREOTIDE
     Indication: Congenital hyperinsulinaemic hypoglycaemia
     Dosage: DOSE WAS GRADUALLY INCREASED TO 20??G/KG/DAY
     Route: 042
  2. OCTREOTIDE [Suspect]
     Active Substance: OCTREOTIDE
     Indication: Congenital hyperinsulinaemic hypoglycaemia
     Dosage: SC PUMP
     Route: 058
  3. OCTREOTIDE [Suspect]
     Active Substance: OCTREOTIDE
     Indication: Congenital hyperinsulinaemic hypoglycaemia
     Dosage: INITIAL DOSAGE NOT STATED
     Route: 042

REACTIONS (1)
  - Drug ineffective [Unknown]
